FAERS Safety Report 7117956-9 (Version None)
Quarter: 2010Q4

REPORT INFORMATION
  Report Type: 
  Country: None (occurrence: None)
  Receive Date: 20101123
  Receipt Date: 20101117
  Transmission Date: 20110411
  Serious: Yes (Death)
  Sender: FDA-Public Use
  Company Number: PHFR2010GB01285

PATIENT
  Sex: Male

DRUGS (4)
  1. CLOZARIL [Suspect]
     Indication: SCHIZOPHRENIA
     Dosage: UNK
     Route: 048
     Dates: start: 19990511
  2. DIAZEPAM [Concomitant]
     Dosage: SMALL AMOUNT
  3. CITALOPRAM HYDROBROMIDE [Concomitant]
  4. CHLORPROMAZINE [Concomitant]

REACTIONS (1)
  - DRUG TOXICITY [None]
